FAERS Safety Report 17183299 (Version 1)
Quarter: 2019Q4

REPORT INFORMATION
  Report Type: Report from Study
  Country: AR (occurrence: AR)
  Receive Date: 20191220
  Receipt Date: 20191220
  Transmission Date: 20200122
  Serious: Yes (Hospitalization, Other)
  Sender: FDA-Public Use
  Company Number: AR-ELI_LILLY_AND_COMPANY-AR201911004891

PATIENT
  Sex: Female

DRUGS (4)
  1. NULIPAR [Concomitant]
     Indication: PARKINSON^S DISEASE
     Dosage: UNK
  2. CETUXIMAB. [Suspect]
     Active Substance: CETUXIMAB
     Indication: PRODUCT USED FOR UNKNOWN INDICATION
     Dosage: 438 MG, WEEKLY (1/W)
     Route: 065
     Dates: start: 20190903
  3. MADOPAR [Concomitant]
     Active Substance: BENSERAZIDE HYDROCHLORIDE\LEVODOPA
     Indication: PARKINSON^S DISEASE
     Dosage: UNK
  4. LEVOCAR [CARBIDOPA;LEVODOPA] [Concomitant]
     Indication: PARKINSON^S DISEASE

REACTIONS (7)
  - Abdominal pain [Unknown]
  - Loss of consciousness [Recovered/Resolved]
  - Hypertension [Recovered/Resolved]
  - Muscle spasms [Unknown]
  - Vomiting [Recovered/Resolved]
  - Decreased appetite [Recovered/Resolved]
  - Diarrhoea [Recovered/Resolved]

NARRATIVE: CASE EVENT DATE: 201910
